FAERS Safety Report 8046987-X (Version None)
Quarter: 2012Q1

REPORT INFORMATION
  Report Type: 
  Country: None (occurrence: None)
  Receive Date: 20120116
  Receipt Date: 20120105
  Transmission Date: 20120608
  Serious: Yes (Hospitalization)
  Sender: FDA-Public Use
  Company Number: US-ELI_LILLY_AND_COMPANY-US201108007737

PATIENT
  Sex: Female

DRUGS (15)
  1. TRAZODONE HCL [Concomitant]
  2. FORTEO [Suspect]
     Dosage: 20 UG, QD
     Route: 065
  3. CYMBALTA [Concomitant]
  4. LISINOPRIL [Concomitant]
  5. FORTEO [Suspect]
     Dosage: 20 UG, QD
     Route: 065
  6. NEURONTIN [Concomitant]
  7. BENTYL [Concomitant]
  8. CLONAZEPAM [Concomitant]
  9. LAMOTRIGINE [Concomitant]
  10. MIRAPEX [Concomitant]
  11. ZEGERID [Concomitant]
  12. FORTEO [Suspect]
     Indication: OSTEOPOROSIS
     Dosage: 20 UG, QD
     Route: 065
     Dates: start: 20110801
  13. FORTEO [Suspect]
     Dosage: 20 UG, QD
     Route: 065
  14. HYDROCHLOROTHIAZIDE [Concomitant]
  15. SOFTENERS, EMOLLIENTS [Concomitant]

REACTIONS (22)
  - TEMPERATURE INTOLERANCE [None]
  - EXCORIATION [None]
  - HYPOAESTHESIA [None]
  - MALAISE [None]
  - SPINAL OPERATION [None]
  - CONTUSION [None]
  - MOVEMENT DISORDER [None]
  - MOBILITY DECREASED [None]
  - URINARY INCONTINENCE [None]
  - FALL [None]
  - PAIN [None]
  - PARAESTHESIA [None]
  - GAIT DISTURBANCE [None]
  - MUSCULOSKELETAL DISCOMFORT [None]
  - FEELING ABNORMAL [None]
  - PAIN IN EXTREMITY [None]
  - ASTHENIA [None]
  - NAUSEA [None]
  - NECK PAIN [None]
  - ARTHRALGIA [None]
  - KIDNEY INFECTION [None]
  - TREMOR [None]
